FAERS Safety Report 13076952 (Version 2)
Quarter: 2017Q1

REPORT INFORMATION
  Report Type: Spontaneous
  Country: UA (occurrence: UA)
  Receive Date: 20161230
  Receipt Date: 20170110
  Transmission Date: 20170428
  Serious: Yes (Hospitalization, Other)
  Sender: FDA-Public Use
  Company Number: UA-PFIZER INC-2016600148

PATIENT
  Age: 50 Year
  Sex: Male

DRUGS (4)
  1. ANALGINE [Concomitant]
  2. INLYTA [Suspect]
     Active Substance: AXITINIB
     Indication: RENAL CANCER METASTATIC
     Dosage: 5 MG, 2X/DAY
     Route: 048
     Dates: start: 201610, end: 201611
  3. DEXALGIN [Concomitant]
  4. KETANOV [Concomitant]
     Active Substance: KETOROLAC\KETOROLAC TROMETHAMINE

REACTIONS (1)
  - Paresis [Not Recovered/Not Resolved]

NARRATIVE: CASE EVENT DATE: 201611
